FAERS Safety Report 9640417 (Version 1)
Quarter: 2013Q4

REPORT INFORMATION
  Report Type: Spontaneous
  Country: US (occurrence: None)
  Receive Date: 20131021
  Receipt Date: 20131021
  Transmission Date: 20140711
  Serious: Yes (Hospitalization)
  Sender: FDA-Public Use
  Company Number: DSU-2013-04819

PATIENT
  Age: 72 Year
  Sex: Female
  Weight: 63.5 kg

DRUGS (3)
  1. WELCHOL (COLESEVELAM HYDROCHLORIDE) (625 MILLIGRAM, TABLET) (COLESEVELAM HYDROCHLORIDE) [Suspect]
     Indication: HYPERCHOLESTEROLAEMIA
     Dosage: 3750 MG (1875 MG, BID) , PER ORAL
     Route: 048
     Dates: start: 201310
  2. FLOMAX (TAMSULOSIN HYDROCHLORIDE) (TAMSULOSIN HYDROCHLORIDE) [Concomitant]
  3. ZYVOX LINEZOLID) (LINEZOLID) [Concomitant]

REACTIONS (1)
  - Urinary tract infection [None]
